FAERS Safety Report 5788858-5 (Version None)
Quarter: 2008Q2

REPORT INFORMATION
  Report Type: 
  Country: None (occurrence: None)
  Receive Date: 20080626
  Receipt Date: 20080617
  Transmission Date: 20081010
  Serious: Yes (Hospitalization)
  Sender: FDA-Public Use
  Company Number: JP-WATSON-2008-03682

PATIENT
  Age: 16 Year
  Sex: Male

DRUGS (2)
  1. METHYLPREDNISOLONE ACETATE [Suspect]
     Indication: NEPHROTIC SYNDROME
     Dosage: 1 G/DAY FOR 3 CONSECUTIVE DAYS
     Route: 042
     Dates: start: 20050512, end: 20050515
  2. PREDNISOLONE (WATSON LABORATORIES) [Suspect]
     Indication: NEPHROTIC SYNDROME
     Dosage: 30 MG/DAY, EVERY DAY
     Route: 048
     Dates: start: 20080515

REACTIONS (1)
  - COLITIS ISCHAEMIC [None]
